FAERS Safety Report 9090628 (Version 1)
Quarter: 2013Q1

REPORT INFORMATION
  Report Type: Report from Study
  Country: US (occurrence: US)
  Receive Date: 20130131
  Receipt Date: 20130131
  Transmission Date: 20140127
  Serious: No
  Sender: FDA-Public Use
  Company Number: US-ABBOTT-12P-163-1011586-00

PATIENT
  Age: 43 Year
  Sex: Male

DRUGS (3)
  1. HUMIRA [Suspect]
     Indication: PSORIASIS
     Dates: start: 20121019, end: 20121019
  2. HUMIRA [Suspect]
     Dates: start: 20121026, end: 20121026
  3. HUMIRA [Suspect]
     Dosage: WAS DUE ON 09 NOV 2012
     Dates: start: 20121112

REACTIONS (1)
  - Inappropriate schedule of drug administration [Unknown]
